FAERS Safety Report 23315496 (Version 1)
Quarter: 2023Q4

REPORT INFORMATION
  Report Type: Spontaneous
  Country: US (occurrence: US)
  Receive Date: 20231219
  Receipt Date: 20231219
  Transmission Date: 20240110
  Serious: No
  Sender: FDA-Public Use
  Company Number: US-ORG100016242-2023000133

PATIENT
  Sex: Male

DRUGS (1)
  1. EXPAREL [Suspect]
     Active Substance: BUPIVACAINE
     Indication: Shoulder arthroplasty
     Dosage: 1 ADMINISTRATION IN THE LEFT ARM
     Route: 065
     Dates: start: 20230415, end: 20230415

REACTIONS (3)
  - Therapeutic product effect prolonged [Not Recovered/Not Resolved]
  - Hypoaesthesia [Not Recovered/Not Resolved]
  - Mobility decreased [Not Recovered/Not Resolved]
